FAERS Safety Report 5934511-4 (Version None)
Quarter: 2008Q4

REPORT INFORMATION
  Report Type: 
  Country: None (occurrence: None)
  Receive Date: 20081029
  Receipt Date: 20081017
  Transmission Date: 20090506
  Serious: Yes (Life-Threatening, Hospitalization)
  Sender: FDA-Public Use
  Company Number: GB-ELI_LILLY_AND_COMPANY-GB200810000891

PATIENT
  Age: 65 Year
  Sex: Male

DRUGS (23)
  1. CYMBALTA [Suspect]
     Indication: DIABETIC NEUROPATHY
     Dosage: 60 MG, UNKNOWN
     Route: 048
     Dates: start: 20080923, end: 20080929
  2. ALENDRONIC ACID [Concomitant]
     Dosage: 70 MG, WEEKLY (1/W)
     Route: 065
  3. ASACOL [Concomitant]
     Dosage: 1.2 G, 2/D
     Route: 065
  4. CYCLIZINE [Concomitant]
     Dosage: 50 MG, 3/D
     Route: 065
  5. DILTIAZEM HCL [Concomitant]
     Dosage: 180 MG, 2/D
     Route: 065
  6. DOXAZOSIN MESYLATE [Concomitant]
     Dosage: 4 MG, DAILY (1/D)
     Route: 065
  7. DOXYCYCLINE [Concomitant]
     Dosage: 100 MG, 3/D
     Route: 065
  8. FORTISIP [Concomitant]
     Dosage: 1 D/F, DAILY (1/D)
     Route: 065
  9. FUROSEMIDE [Concomitant]
     Dosage: 40 MG, DAILY (1/D)
     Route: 065
  10. FYBOGEL [Concomitant]
     Dosage: 1 D/F, 2/D
     Route: 065
  11. ISMN [Concomitant]
     Dosage: 90 MG, DAILY (1/D)
     Route: 065
  12. METOCLOPRAMIDE [Concomitant]
     Dosage: 10 MG, 3/D
     Route: 065
  13. MOVICOL /01053601/ [Concomitant]
     Dosage: 1 D/F, 3/D
     Route: 065
  14. MS CONTIN [Concomitant]
     Dosage: 60 MG, 2/D
     Route: 065
  15. NOVOLOG [Concomitant]
     Dosage: 20 IU, DAILY (1/D)
     Route: 065
  16. OMEPRAZOLE [Concomitant]
     Dosage: 40 MG, DAILY (1/D)
     Route: 065
  17. ORAMORPH SR [Concomitant]
     Dosage: 10 MG, AS NEEDED
     Route: 065
  18. ACETAMINOPHEN [Concomitant]
     Dosage: 1 G, 4/D
     Route: 065
  19. PREDNISOLONE [Concomitant]
     Dosage: 15 MG, DAILY (1/D)
     Route: 065
  20. RAMIPRIL [Concomitant]
     Dosage: 10 MG, DAILY (1/D)
     Route: 065
  21. DOCUSATE SODIUM [Concomitant]
     Dosage: 200 MG, 2/D
     Route: 065
  22. VANCOMYCIN HYDROCHLORIDE [Concomitant]
     Dosage: 1 G, DAILY (1/D)
     Route: 065
     Dates: start: 20080901, end: 20080915
  23. WARFARIN SODIUM [Concomitant]
     Dosage: UNK, UNKNOWN
     Route: 065

REACTIONS (5)
  - ACUTE PSYCHOSIS [None]
  - AGGRESSION [None]
  - CONVERSION DISORDER [None]
  - INTENTIONAL SELF-INJURY [None]
  - SUICIDAL IDEATION [None]
